FAERS Safety Report 5137512-1 (Version None)
Quarter: 2006Q4

REPORT INFORMATION
  Report Type: 
  Country: None (occurrence: None)
  Receive Date: 20061030
  Receipt Date: 20051114
  Transmission Date: 20070319
  Serious: No
  Sender: FDA-Public Use
  Company Number: US-GLAXOSMITHKLINE-A0582188A

PATIENT
  Age: 78 Year
  Sex: Female
  Weight: 59.1 kg

DRUGS (3)
  1. ADVAIR HFA [Suspect]
     Indication: ASTHMA
     Dosage: 1PUFF TWICE PER DAY
     Route: 055
     Dates: start: 20030101, end: 20050101
  2. NYSTATIN [Concomitant]
  3. FLONASE [Concomitant]
     Route: 045

REACTIONS (2)
  - FATIGUE [None]
  - ORAL CANDIDIASIS [None]
